FAERS Safety Report 12791511 (Version 1)
Quarter: 2016Q3

REPORT INFORMATION
  Report Type: Spontaneous
  Country: US (occurrence: US)
  Receive Date: 20160929
  Receipt Date: 20160929
  Transmission Date: 20161109
  Serious: No
  Sender: FDA-Public Use
  Company Number: US-BIOGEN-2016BI00294466

PATIENT
  Sex: Female

DRUGS (1)
  1. TYSABRI [Suspect]
     Active Substance: NATALIZUMAB
     Indication: MULTIPLE SCLEROSIS
     Route: 042
     Dates: start: 20160826

REACTIONS (6)
  - Migraine [Not Recovered/Not Resolved]
  - Wound [Not Recovered/Not Resolved]
  - Gait disturbance [Recovered/Resolved]
  - Eye pain [Recovered/Resolved]
  - Rash papular [Not Recovered/Not Resolved]
  - Joint swelling [Recovered/Resolved]
